FAERS Safety Report 9587570 (Version 1)
Quarter: 2013Q4

REPORT INFORMATION
  Report Type: Spontaneous
  Country: US (occurrence: US)
  Receive Date: 20131003
  Receipt Date: 20131003
  Transmission Date: 20140711
  Serious: Yes (Hospitalization)
  Sender: FDA-Public Use
  Company Number: US-ROCHE-1283362

PATIENT
  Age: 64 Year
  Sex: Female

DRUGS (13)
  1. BONIVA [Suspect]
     Indication: OSTEOPOROSIS
     Route: 042
     Dates: start: 200705, end: 200803
  2. ACLASTA [Suspect]
     Indication: OSTEOPOROSIS
     Route: 042
     Dates: start: 200905, end: 201104
  3. PROLIA [Suspect]
     Indication: OSTEOPOROSIS
     Route: 065
     Dates: start: 201112, end: 20130301
  4. FOSAMAX [Suspect]
     Indication: OSTEOPOROSIS
     Route: 058
     Dates: start: 200503, end: 200705
  5. VITAMIN D [Concomitant]
  6. CALCIMAGON [Concomitant]
  7. CLEXANE [Concomitant]
  8. NEXIUM [Concomitant]
  9. SUPRADYN [Concomitant]
  10. DAFALGAN [Concomitant]
  11. LIVIAL [Concomitant]
  12. OMEGA 3 CO-FACTOR (UNK INGREDIENTS) [Concomitant]
  13. SIRDALUD [Concomitant]

REACTIONS (1)
  - Fracture delayed union [Not Recovered/Not Resolved]
